FAERS Safety Report 10891847 (Version 1)
Quarter: 2015Q1

REPORT INFORMATION
  Report Type: Spontaneous
  Country: DE (occurrence: DE)
  Receive Date: 20150306
  Receipt Date: 20150306
  Transmission Date: 20150721
  Serious: Yes (Other)
  Sender: FDA-Public Use
  Company Number: DE-SHIRE-DE201501664

PATIENT
  Age: 32 Year
  Sex: Male
  Weight: 75 kg

DRUGS (1)
  1. 476 (MESALAZINE/MESALAMINE) [Suspect]
     Active Substance: MESALAMINE
     Indication: COLITIS ULCERATIVE
     Dosage: 6 G, UNKNOWN (6G TOTAL DAILY DOSE)
     Route: 048

REACTIONS (3)
  - Prescribed overdose [Unknown]
  - Renal failure [Not Recovered/Not Resolved]
  - Blood creatinine increased [Not Recovered/Not Resolved]

NARRATIVE: CASE EVENT DATE: 20150129
